FAERS Safety Report 6594188-4 (Version None)
Quarter: 2010Q1

REPORT INFORMATION
  Report Type: 
  Country: None (occurrence: None)
  Receive Date: 20100222
  Receipt Date: 20100217
  Transmission Date: 20100710
  Serious: Yes (Death, Life-Threatening, Hospitalization, Other)
  Sender: FDA-Public Use
  Company Number: JP-BAYER-200910819BYL

PATIENT
  Age: 73 Year
  Sex: Female
  Weight: 61 kg

DRUGS (16)
  1. NEXAVAR [Suspect]
     Indication: RENAL CELL CARCINOMA
     Dosage: TOTAL DAILY DOSE: 600 MG  UNIT DOSE: 200 MG
     Route: 048
     Dates: start: 20080526, end: 20080728
  2. NEXAVAR [Suspect]
     Dosage: UNIT DOSE: 200 MG
     Route: 048
     Dates: start: 20080804, end: 20081005
  3. NEXAVAR [Suspect]
     Dosage: UNIT DOSE: 200 MG
     Route: 048
     Dates: start: 20081110, end: 20081208
  4. NEXAVAR [Suspect]
     Dosage: UNIT DOSE: 200 MG
     Route: 048
     Dates: start: 20081006, end: 20081027
  5. NEXAVAR [Suspect]
     Dosage: UNIT DOSE: 200 MG
     Route: 048
     Dates: start: 20081215, end: 20090216
  6. IMUNACE [Suspect]
     Indication: DRUG USE FOR UNKNOWN INDICATION
     Route: 041
     Dates: start: 20081118, end: 20090223
  7. NORVASC [Concomitant]
     Route: 048
     Dates: start: 20070501, end: 20080216
  8. ALLOPURINOL [Concomitant]
     Route: 048
     Dates: start: 20070501, end: 20080216
  9. DIOVAN [Concomitant]
     Route: 048
     Dates: start: 20070501, end: 20080216
  10. FERROMIA [Concomitant]
     Route: 048
     Dates: start: 20070501, end: 20080216
  11. CINAL [Concomitant]
     Route: 048
     Dates: start: 20070501, end: 20080216
  12. TAGAMET [Concomitant]
     Route: 048
     Dates: start: 20070501, end: 20080216
  13. HYPEN [Concomitant]
     Route: 048
     Dates: start: 20070501, end: 20080216
  14. MUCOSTA [Concomitant]
     Route: 048
     Dates: start: 20070501, end: 20080216
  15. ZOMETA [Concomitant]
     Route: 041
     Dates: start: 20080929, end: 20090223
  16. ELCITONIN [Concomitant]
     Route: 065
     Dates: start: 20080929, end: 20090223

REACTIONS (10)
  - CACHEXIA [None]
  - DECREASED APPETITE [None]
  - DIARRHOEA [None]
  - GASTRIC ULCER [None]
  - HAEMATEMESIS [None]
  - HYPERCALCAEMIA [None]
  - PSEUDOMEMBRANOUS COLITIS [None]
  - PYREXIA [None]
  - RASH [None]
  - STOMATITIS [None]
